FAERS Safety Report 8602402-6 (Version None)
Quarter: 2012Q3

REPORT INFORMATION
  Report Type: 
  Country: None (occurrence: None)
  Receive Date: 20120817
  Receipt Date: 20120809
  Transmission Date: 20120928
  Serious: Yes (Hospitalization)
  Sender: FDA-Public Use
  Company Number: BE-SANOFI-AVENTIS-2012SA057403

PATIENT
  Age: 71 Year
  Sex: Female

DRUGS (1)
  1. ARAVA [Suspect]
     Dosage: DOSE-1 TABLET OF 20MG/DAY
     Route: 048

REACTIONS (2)
  - RETROPERITONEAL ABSCESS [None]
  - PULMONARY EMBOLISM [None]
